FAERS Safety Report 5482876-2 (Version None)
Quarter: 2007Q4

REPORT INFORMATION
  Report Type: 
  Country: None (occurrence: None)
  Receive Date: 20071011
  Receipt Date: 20070928
  Transmission Date: 20080405
  Serious: Yes (Other)
  Sender: FDA-Public Use
  Company Number: AU-PFIZER INC-2007081545

PATIENT
  Sex: Male

DRUGS (2)
  1. ZELDOX (CAPSULES) [Suspect]
  2. RISPERIDONE [Concomitant]

REACTIONS (3)
  - DELUSION [None]
  - FEELING ABNORMAL [None]
  - JEALOUS DELUSION [None]
